FAERS Safety Report 6186549-2 (Version None)
Quarter: 2009Q2

REPORT INFORMATION
  Report Type: 
  Country: None (occurrence: None)
  Receive Date: 20090512
  Receipt Date: 20090508
  Transmission Date: 20091009
  Serious: Yes (Death)
  Sender: FDA-Public Use
  Company Number: US-BRISTOL-MYERS SQUIBB COMPANY-14616932

PATIENT
  Age: 72 Year
  Sex: Male

DRUGS (1)
  1. ABILIFY [Suspect]
     Indication: DEMENTIA

REACTIONS (1)
  - PNEUMONIA [None]
